FAERS Safety Report 17760247 (Version 1)
Quarter: 2020Q2

REPORT INFORMATION
  Report Type: Spontaneous
  Country: US (occurrence: US)
  Receive Date: 20200507
  Receipt Date: 20200507
  Transmission Date: 20200714
  Serious: Yes (Life-Threatening, Other)
  Sender: FDA-Public Use
  Company Number: None

PATIENT
  Age: 73 Year
  Sex: Male
  Weight: 88.1 kg

DRUGS (19)
  1. TOCILIZUMAB 400MG [Suspect]
     Active Substance: TOCILIZUMAB
     Indication: COVID-19 TREATMENT
     Route: 042
     Dates: start: 20200414, end: 20200414
  2. LOVENOX [Concomitant]
     Active Substance: ENOXAPARIN SODIUM
  3. MIDAZOLAM. [Concomitant]
     Active Substance: MIDAZOLAM
  4. MIRALAX [Concomitant]
     Active Substance: POLYETHYLENE GLYCOL 3350
  5. HYDROXYCHOLROQUINE [Concomitant]
  6. HUMALOG [Concomitant]
     Active Substance: INSULIN LISPRO
  7. TYLENOL [Concomitant]
     Active Substance: ACETAMINOPHEN
  8. FENTANYL. [Concomitant]
     Active Substance: FENTANYL
  9. LANTUS [Concomitant]
     Active Substance: INSULIN GLARGINE
  10. AMLODIPINE [Concomitant]
     Active Substance: AMLODIPINE BESYLATE
  11. METHYLPREDNISOLONE. [Concomitant]
     Active Substance: METHYLPREDNISOLONE
  12. VALSARTAN. [Concomitant]
     Active Substance: VALSARTAN
  13. HEPARIN [Concomitant]
     Active Substance: HEPARIN SODIUM
  14. REGULAR INSULIN [Concomitant]
     Active Substance: INSULIN NOS
  15. NOREPINEPRHINE [Concomitant]
  16. PROPOFOL. [Concomitant]
     Active Substance: PROPOFOL
  17. LASIX [Concomitant]
     Active Substance: FUROSEMIDE
  18. ATIVAN [Concomitant]
     Active Substance: LORAZEPAM
  19. HEPARIN [Concomitant]
     Active Substance: HEPARIN SODIUM

REACTIONS (4)
  - Pneumonia bacterial [None]
  - Off label use [None]
  - Citrobacter infection [None]
  - SARS-CoV-2 test positive [None]

NARRATIVE: CASE EVENT DATE: 20200430
